FAERS Safety Report 7951193-0 (Version None)
Quarter: 2011Q4

REPORT INFORMATION
  Report Type: 
  Country: None (occurrence: None)
  Receive Date: 20111201
  Receipt Date: 20111121
  Transmission Date: 20120403
  Serious: Yes (Other)
  Sender: FDA-Public Use
  Company Number: PHEH2011US010145

PATIENT
  Sex: Female

DRUGS (1)
  1. TRILEPTAL [Suspect]
     Dosage: 1500 MG, AT 6.00 AM AND 9.00 PM
     Route: 048

REACTIONS (7)
  - CONVULSION [None]
  - SLEEP DISORDER [None]
  - HERNIA [None]
  - ULCER [None]
  - DEPRESSION [None]
  - HEART RATE IRREGULAR [None]
  - GASTROOESOPHAGEAL REFLUX DISEASE [None]
